FAERS Safety Report 7318618-5 (Version None)
Quarter: 2011Q1

REPORT INFORMATION
  Report Type: 
  Country: None (occurrence: None)
  Receive Date: 20110228
  Receipt Date: 20110218
  Transmission Date: 20110831
  Serious: Yes (Hospitalization)
  Sender: FDA-Public Use
  Company Number: JP-ASTELLAS-2011JP000798

PATIENT
  Age: 51 Year
  Sex: Female
  Weight: 50.8 kg

DRUGS (10)
  1. TACROLIMUS [Suspect]
     Indication: LUPUS NEPHRITIS
     Dosage: 2 MG, UNKNOWN/D
     Route: 048
     Dates: start: 20091217
  2. PROCYLIN [Concomitant]
     Indication: LUPUS NEPHRITIS
     Dosage: UNK
     Route: 048
  3. MUCOSTA [Concomitant]
     Dosage: UNK
     Route: 048
  4. BUFFERIN [Concomitant]
     Dosage: UNK
     Route: 048
  5. NU-LOTAN [Concomitant]
     Dosage: UNK
     Route: 048
     Dates: end: 20100113
  6. ACTOS [Concomitant]
     Dosage: UNK
     Route: 048
  7. PREDNISOLONE [Concomitant]
     Indication: LUPUS NEPHRITIS
     Dosage: 10 MG, UNKNOWN/D
     Route: 048
  8. DIOVAN [Concomitant]
     Dosage: UNK
     Route: 048
     Dates: start: 20100114
  9. AMARYL [Concomitant]
     Dosage: UNK
     Route: 048
  10. METHYCOBAL [Concomitant]
     Dosage: UNK
     Route: 048

REACTIONS (1)
  - PERICARDITIS [None]
